FAERS Safety Report 6716098-1 (Version None)
Quarter: 2010Q2

REPORT INFORMATION
  Report Type: 
  Country: None (occurrence: None)
  Receive Date: 20100507
  Receipt Date: 20100420
  Transmission Date: 20101027
  Serious: Yes (Hospitalization)
  Sender: FDA-Public Use
  Company Number: B0650935A

PATIENT
  Sex: Female

DRUGS (8)
  1. TAGAMET [Suspect]
     Indication: DRUG USE FOR UNKNOWN INDICATION
     Route: 042
     Dates: start: 20100121, end: 20100121
  2. MORPHINE [Suspect]
     Indication: PAIN
     Route: 042
     Dates: start: 20100122
  3. EXFORGE [Suspect]
     Route: 048
     Dates: start: 20090901, end: 20100126
  4. EPHEDRINE [Suspect]
     Indication: DRUG USE FOR UNKNOWN INDICATION
     Route: 042
     Dates: start: 20100121, end: 20100121
  5. DIPRIVAN [Suspect]
     Indication: DRUG USE FOR UNKNOWN INDICATION
     Route: 042
     Dates: start: 20100121, end: 20100121
  6. DIAMICRON [Concomitant]
     Route: 065
     Dates: start: 20090901
  7. LIPANTHYL [Concomitant]
     Route: 065
     Dates: start: 20090901
  8. UNKNOWN GENERAL ANAESTHETIC [Concomitant]
     Dates: start: 20100121

REACTIONS (9)
  - AUTOIMMUNE DISORDER [None]
  - BLOOD CREATININE INCREASED [None]
  - HAEMOLYTIC ANAEMIA [None]
  - HYPERBILIRUBINAEMIA [None]
  - OLIGURIA [None]
  - RED BLOOD CELL SCHISTOCYTES PRESENT [None]
  - RENAL FAILURE ACUTE [None]
  - THROMBOTIC MICROANGIOPATHY [None]
  - VOMITING [None]
